FAERS Safety Report 25790654 (Version 1)
Quarter: 2025Q3

REPORT INFORMATION
  Report Type: Spontaneous
  Country: US (occurrence: None)
  Receive Date: 20250910
  Receipt Date: 20250910
  Transmission Date: 20251020
  Serious: Yes (Death)
  Sender: FDA-CTU
  Company Number: None

PATIENT
  Age: 69 Year
  Sex: Female

DRUGS (2)
  1. HYCAMTIN [Suspect]
     Active Substance: TOPOTECAN HYDROCHLORIDE
     Dosage: 0.25MG ; 0.75MG QD?
  2. HYCAMTIN [Suspect]
     Active Substance: TOPOTECAN HYDROCHLORIDE

REACTIONS (1)
  - Death [None]
